FAERS Safety Report 11093815 (Version 3)
Quarter: 2015Q4

REPORT INFORMATION
  Report Type: Report from Study
  Country: BR (occurrence: BR)
  Receive Date: 20150506
  Receipt Date: 20151002
  Transmission Date: 20160304
  Serious: Yes (Other)
  Sender: FDA-Public Use
  Company Number: BR-ACTELION-A-CH2015-117348

PATIENT
  Age: 28 Year
  Sex: Male
  Weight: 50 kg

DRUGS (7)
  1. ZAVESCA [Suspect]
     Active Substance: MIGLUSTAT
     Dosage: 100 MG, BID
     Route: 048
     Dates: start: 20100809
  2. ZAVESCA [Suspect]
     Active Substance: MIGLUSTAT
     Dosage: 300 MG, BID
     Route: 048
  3. CLONAZEPAM. [Concomitant]
     Active Substance: CLONAZEPAM
  4. VALPROIC ACID. [Concomitant]
     Active Substance: VALPROIC ACID
  5. PHENOBARBITAL. [Concomitant]
     Active Substance: PHENOBARBITAL
  6. MELATONIN [Concomitant]
     Active Substance: MELATONIN
  7. ZAVESCA [Suspect]
     Active Substance: MIGLUSTAT
     Indication: NIEMANN-PICK DISEASE
     Dosage: UNK
     Route: 048
     Dates: start: 20100524

REACTIONS (6)
  - Niemann-Pick disease [Unknown]
  - Platelet count decreased [Unknown]
  - Seizure [Unknown]
  - Condition aggravated [Unknown]
  - Insomnia [Unknown]
  - Thrombocytopenia [Unknown]
